FAERS Safety Report 7812910-3 (Version None)
Quarter: 2011Q4

REPORT INFORMATION
  Report Type: 
  Country: None (occurrence: None)
  Receive Date: 20111011
  Receipt Date: 20110927
  Transmission Date: 20120403
  Serious: Yes (Other)
  Sender: FDA-Public Use
  Company Number: B0752944A

PATIENT
  Sex: Male

DRUGS (4)
  1. ZIDOVUDINE [Suspect]
     Indication: HIV INFECTION
  2. STAVUDINE [Suspect]
     Indication: HIV INFECTION
  3. DIDANOSINE [Suspect]
     Indication: HIV INFECTION
  4. ZALCITABINE (FORMULATION UNKNOWN) (ZALCITABINE) [Suspect]
     Indication: HIV INFECTION

REACTIONS (3)
  - NEUROPATHY PERIPHERAL [None]
  - LIPOATROPHY [None]
  - MITOCHONDRIAL TOXICITY [None]
